FAERS Safety Report 6212855-9 (Version None)
Quarter: 2009Q2

REPORT INFORMATION
  Report Type: 
  Country: None (occurrence: None)
  Receive Date: 20090603
  Receipt Date: 20090429
  Transmission Date: 20091009
  Serious: Yes (Death)
  Sender: FDA-Public Use
  Company Number: PHHY2009RU14913

PATIENT
  Sex: Female
  Weight: 72 kg

DRUGS (10)
  1. ACLASTA [Suspect]
     Indication: OSTEOPOROSIS POSTMENOPAUSAL
     Dosage: 5 MG, UNK
     Dates: start: 20090317
  2. VEROSPIRON [Concomitant]
     Dosage: 200 MG, UNK
     Route: 048
  3. FUROSEMIDE [Concomitant]
  4. METRONIDAZOLE [Concomitant]
  5. STEROIDS NOS [Concomitant]
  6. NSAID'S [Concomitant]
  7. URSOSAN [Concomitant]
     Dosage: 1000 MG, UNK
     Route: 048
  8. HEPA-MERZ [Concomitant]
     Dosage: 18 UNK, UNK
     Route: 048
  9. TIROXINA [Concomitant]
     Dosage: 150 MG, UNK
     Route: 048
  10. ANAPRILIN [Concomitant]
     Dosage: 80 MG, UNK
     Route: 048

REACTIONS (7)
  - ASCITES [None]
  - BILIARY CIRRHOSIS [None]
  - CHROMATURIA [None]
  - FATIGUE [None]
  - JAUNDICE [None]
  - MENTAL STATUS CHANGES [None]
  - PRURITUS [None]
